FAERS Safety Report 4654929-X (Version None)
Quarter: 2005Q2

REPORT INFORMATION
  Report Type: 
  Country: None (occurrence: None)
  Receive Date: 20050506
  Receipt Date: 20050429
  Transmission Date: 20051028
  Serious: Yes (Hospitalization, Disabling)
  Sender: FDA-Public Use
  Company Number: CM-MERCK-0505USA00105

PATIENT
  Age: 33 Year
  Sex: Male
  Weight: 74 kg

DRUGS (1)
  1. STROMECTOL [Suspect]
     Route: 048
     Dates: start: 20050310, end: 20050310

REACTIONS (8)
  - ASTHENIA [None]
  - COMA [None]
  - CONJUNCTIVAL HAEMORRHAGE [None]
  - DEPRESSED LEVEL OF CONSCIOUSNESS [None]
  - DIARRHOEA [None]
  - DIFFICULTY IN WALKING [None]
  - PAIN [None]
  - PYREXIA [None]
